FAERS Safety Report 6702557-4 (Version None)
Quarter: 2010Q2

REPORT INFORMATION
  Report Type: 
  Country: None (occurrence: None)
  Receive Date: 20100429
  Receipt Date: 20100415
  Transmission Date: 20101027
  Serious: Yes (Hospitalization)
  Sender: FDA-Public Use
  Company Number: US-ELI_LILLY_AND_COMPANY-US201004005640

PATIENT
  Age: 81 Year
  Sex: Female

DRUGS (10)
  1. FORTEO [Suspect]
     Indication: OSTEOPOROSIS
     Dosage: 20 UG, 2/D
     Dates: start: 20091001, end: 20100406
  2. FORTEO [Suspect]
     Dosage: 20 UG, 2/D
     Dates: start: 20100409
  3. NEXIUM [Concomitant]
  4. LOZOL [Concomitant]
  5. TRICOR [Concomitant]
  6. VERELAN [Concomitant]
  7. MULTI-VITAMIN [Concomitant]
  8. ASPIRIN [Concomitant]
  9. TYLENOL (CAPLET) [Concomitant]
  10. ATARAX [Concomitant]

REACTIONS (1)
  - HAEMOGLOBIN DECREASED [None]
